FAERS Safety Report 9068712 (Version 1)
Quarter: 2013Q1

REPORT INFORMATION
  Report Type: Spontaneous
  Country: US (occurrence: US)
  Receive Date: 20130128
  Receipt Date: 20130128
  Transmission Date: 20140127
  Serious: Yes (Other)
  Sender: FDA-Public Use
  Company Number: US-BAUSCH-BL-2013-000184

PATIENT
  Age: 68 Year
  Sex: Male

DRUGS (3)
  1. BESIVANCE [Suspect]
     Indication: PREOPERATIVE CARE
     Dosage: DROP; OPHTHALMIC
     Route: 047
  2. BESIVANCE [Suspect]
     Indication: POSTOPERATIVE CARE
  3. BESIVANCE [Suspect]
     Indication: OFF LABEL USE

REACTIONS (1)
  - Endophthalmitis [Unknown]
